FAERS Safety Report 5639884-8 (Version None)
Quarter: 2008Q1

REPORT INFORMATION
  Report Type: 
  Country: None (occurrence: None)
  Receive Date: 20080131
  Receipt Date: 20071203
  Transmission Date: 20080703
  Serious: Yes (Hospitalization)
  Sender: FDA-Public Use
  Company Number: 163-21880-07101223

PATIENT
  Age: 65 Year
  Sex: Male

DRUGS (5)
  1. REVLIMID [Suspect]
     Indication: MULTIPLE MYELOMA
     Dosage: 25 MG, DAILY X 21 DAYS, ORAL ; 15 MG, QDAY X 21 OF 28, ORAL
     Route: 048
     Dates: start: 20070823
  2. REVLIMID [Suspect]
     Indication: MULTIPLE MYELOMA
     Dosage: 25 MG, DAILY X 21 DAYS, ORAL ; 15 MG, QDAY X 21 OF 28, ORAL
     Route: 048
     Dates: start: 20070901
  3. DECADRON [Suspect]
     Indication: MULTIPLE MYELOMA
     Dates: start: 20070901, end: 20071001
  4. ASPIRIN [Concomitant]
  5. COUMADIN [Concomitant]

REACTIONS (2)
  - DEEP VEIN THROMBOSIS [None]
  - HYPERTENSION [None]
